FAERS Safety Report 7978607-4 (Version None)
Quarter: 2011Q4

REPORT INFORMATION
  Report Type: 
  Country: None (occurrence: None)
  Receive Date: 20111129
  Receipt Date: 20110906
  Transmission Date: 20120403
  Serious: No
  Sender: FDA-Public Use
  Company Number: PHEH2011US03359

PATIENT
  Age: 61 Year
  Sex: Female

DRUGS (6)
  1. MAGNESIUM (MAGNESIUM) [Concomitant]
  2. ZOFRAN [Concomitant]
  3. POTASSIUM CHLORIDE [Concomitant]
  4. OMEPRAZOLE [Concomitant]
  5. AFINITOR [Suspect]
     Dosage: 10 MG, ONCE DAILY, ORAL 5 MG
     Route: 048
     Dates: start: 20110531
  6. OXYCODONE HYDROCHLORIDE [Suspect]

REACTIONS (8)
  - NAUSEA [None]
  - PAIN [None]
  - CONSTIPATION [None]
  - FATIGUE [None]
  - URINE COLOUR ABNORMAL [None]
  - DIARRHOEA [None]
  - STOMATITIS [None]
  - FAECES DISCOLOURED [None]
